FAERS Safety Report 8322199-7 (Version None)
Quarter: 2012Q2

REPORT INFORMATION
  Report Type: 
  Country: None (occurrence: None)
  Receive Date: 20120430
  Receipt Date: 20110809
  Transmission Date: 20120825
  Serious: No
  Sender: FDA-Public Use
  Company Number: US-COVIDIEN/TYCO HEALTHCARE/MALLINCKRODT-T201101573

PATIENT
  Sex: Female

DRUGS (13)
  1. HYDROCODONE BITARTRATE + ACETAMINOPHEN [Suspect]
     Indication: PROCEDURAL PAIN
     Dosage: 15 ML, SINGLE
     Dates: start: 20110801, end: 20110801
  2. FLONASE [Concomitant]
     Dosage: UNK
  3. CLARITIN                           /00917501/ [Concomitant]
     Dosage: 10 MG, UNK
  4. VITAMIN D [Concomitant]
     Dosage: UNK
  5. HYDROCHLOROTHIAZIDE [Concomitant]
     Dosage: 25 MG, UNK
  6. ALBUTEROL [Concomitant]
     Indication: ASTHMA
     Dosage: UNK
  7. SIMVASTATIN [Concomitant]
     Dosage: UNK
  8. ADVAIR DISKUS 100/50 [Concomitant]
     Dosage: UNK
  9. SINGULAIR [Concomitant]
     Dosage: 10 MG, UNK
  10. FERROUS SULFATE TAB [Concomitant]
     Dosage: 75 MG, UNK
  11. NORVASC [Concomitant]
     Indication: HYPERTENSION
     Dosage: UNK
  12. COZAAR [Concomitant]
     Dosage: 100 MG, UNK
  13. LASIX [Concomitant]
     Dosage: 40 MG, UNK

REACTIONS (5)
  - DRUG HYPERSENSITIVITY [None]
  - OROPHARYNGEAL PAIN [None]
  - DRUG INEFFECTIVE [None]
  - THERMAL BURN [None]
  - STOMATITIS [None]
